FAERS Safety Report 5953068-5 (Version None)
Quarter: 2008Q4

REPORT INFORMATION
  Report Type: 
  Country: None (occurrence: None)
  Receive Date: 20081114
  Receipt Date: 20071019
  Transmission Date: 20090506
  Serious: No
  Sender: FDA-Public Use
  Company Number: US-BRISTOL-MYERS SQUIBB COMPANY-13949698

PATIENT
  Age: 23 Year
  Sex: Female
  Weight: 59 kg

DRUGS (1)
  1. GLUCOPHAGE XR [Suspect]
     Indication: METABOLIC SYNDROME
     Dosage: SOMETIMES 3 TABS. DRUG STARTED 2-3 YEARS AGO.
     Route: 048

REACTIONS (2)
  - NAUSEA [None]
  - VOMITING [None]
